FAERS Safety Report 12256167 (Version 2)
Quarter: 2016Q3

REPORT INFORMATION
  Report Type: Spontaneous
  Country: US (occurrence: US)
  Receive Date: 20160412
  Receipt Date: 20160716
  Transmission Date: 20161109
  Serious: Yes (Hospitalization, Other)
  Sender: FDA-Public Use
  Company Number: US-PFIZER INC-2016186760

PATIENT
  Age: 57 Year
  Sex: Female

DRUGS (7)
  1. XANAX [Suspect]
     Active Substance: ALPRAZOLAM
     Indication: ANXIETY
     Dosage: 10 MG, 3X/DAY
     Dates: start: 2000, end: 2010
  2. XANAX [Suspect]
     Active Substance: ALPRAZOLAM
     Indication: DIZZINESS
  3. ATENOL [Concomitant]
     Active Substance: ATENOLOL
     Indication: BLOOD PRESSURE ABNORMAL
     Dosage: UNK
  4. XANAX [Suspect]
     Active Substance: ALPRAZOLAM
     Indication: DYSPNOEA
  5. LEVOTHYROXINE. [Concomitant]
     Active Substance: LEVOTHYROXINE
     Indication: HYPERTHYROIDISM
     Dosage: UNK
  6. CLONAZEPAM. [Concomitant]
     Active Substance: CLONAZEPAM
     Indication: DIZZINESS
  7. CLONAZEPAM. [Concomitant]
     Active Substance: CLONAZEPAM
     Indication: ANXIETY
     Dosage: UNK, 3X/DAY
     Dates: start: 2011, end: 2012

REACTIONS (6)
  - Eating disorder [Recovered/Resolved]
  - Mental disorder [Recovered/Resolved]
  - Insomnia [Recovered/Resolved]
  - Depression [Unknown]
  - Incoherent [Recovered/Resolved]
  - Overdose [Unknown]

NARRATIVE: CASE EVENT DATE: 2000
